FAERS Safety Report 5966865-7 (Version None)
Quarter: 2008Q4

REPORT INFORMATION
  Report Type: 
  Country: None (occurrence: None)
  Receive Date: 20081119
  Receipt Date: 20080822
  Transmission Date: 20090506
  Serious: No
  Sender: FDA-Public Use
  Company Number: WAES 0808USA04498

PATIENT
  Age: 67 Year
  Sex: Male

DRUGS (15)
  1. JANUVIA [Suspect]
     Indication: DIABETES MELLITUS
     Dosage: 100 MG/AM/PO
     Route: 048
     Dates: start: 20070101
  2. EXCEDRIN BACK AND BODY [Concomitant]
  3. KEPPRA [Concomitant]
  4. LYRICA [Concomitant]
  5. PROVIGIL [Concomitant]
  6. WELLBUTRIN [Concomitant]
  7. ASPIRIN [Concomitant]
  8. GASTROINTESTINAL PREPARATIONS (U [Concomitant]
  9. GEMFIBROZIL [Concomitant]
  10. LISINOPRIL [Concomitant]
  11. METFORMIN HCL [Concomitant]
  12. OMEGA-3 MARINE TRIGLYCERIDES [Concomitant]
  13. OMEPRAZOLE [Concomitant]
  14. SIMVASTATIN [Concomitant]
  15. FOLIC ACID [Concomitant]

REACTIONS (6)
  - ARTHRALGIA [None]
  - BACK PAIN [None]
  - HEADACHE [None]
  - MUSCULAR WEAKNESS [None]
  - PARAESTHESIA [None]
  - RENAL IMPAIRMENT [None]
